FAERS Safety Report 24964998 (Version 1)
Quarter: 2025Q1

REPORT INFORMATION
  Report Type: Spontaneous
  Country: DK (occurrence: DK)
  Receive Date: 20250213
  Receipt Date: 20250213
  Transmission Date: 20250408
  Serious: Yes (Hospitalization)
  Sender: PFIZER
  Company Number: DK-PFIZER INC-PV202500016508

PATIENT
  Age: 37 Year
  Sex: Male

DRUGS (1)
  1. LORLATINIB [Suspect]
     Active Substance: LORLATINIB

REACTIONS (2)
  - Psychotic disorder [Not Recovered/Not Resolved]
  - Mood altered [Not Recovered/Not Resolved]
